FAERS Safety Report 7087295-3 (Version None)
Quarter: 2010Q4

REPORT INFORMATION
  Report Type: 
  Country: None (occurrence: None)
  Receive Date: 20101107
  Receipt Date: 20100927
  Transmission Date: 20110411
  Serious: Yes (Other)
  Sender: FDA-Public Use
  Company Number: PHHY2010BR67679

PATIENT
  Age: 60 Year
  Sex: Male
  Weight: 71 kg

DRUGS (4)
  1. EXFORGE HCT [Suspect]
     Dosage: 160/12.5/10 MG, ONCE/DAY
  2. METFORMIN HCL [Suspect]
     Dosage: 1000 MG/DAY
  3. ROSUVASTATIN [Concomitant]
     Dosage: 10 MG/DAY
  4. ASPIRIN [Concomitant]
     Dosage: 100 MG/DAY

REACTIONS (4)
  - BLOOD PRESSURE INADEQUATELY CONTROLLED [None]
  - CORONARY ARTERIAL STENT INSERTION [None]
  - CORONARY ARTERY OCCLUSION [None]
  - MYOCARDIAL ISCHAEMIA [None]
